FAERS Safety Report 4382500-6 (Version None)
Quarter: 2004Q2

REPORT INFORMATION
  Report Type: 
  Country: None (occurrence: None)
  Receive Date: 20040607
  Receipt Date: 20040525
  Transmission Date: 20050107
  Serious: Yes (Life-Threatening, Hospitalization)
  Sender: FDA-Public Use
  Company Number: 2004-02013

PATIENT
  Age: 70 Year
  Sex: Male

DRUGS (1)
  1. BCG THERAPEUTICS, MFR UNK, [Suspect]
     Indication: TRANSITIONAL CELL CARCINOMA

REACTIONS (7)
  - BOVINE TUBERCULOSIS [None]
  - C-REACTIVE PROTEIN INCREASED [None]
  - HEPATITIS GRANULOMATOUS [None]
  - MYCOBACTERIA BLOOD TEST POSITIVE [None]
  - RED BLOOD CELL SEDIMENTATION RATE INCREASED [None]
  - SEPSIS [None]
  - URINARY TRACT INFECTION [None]
